FAERS Safety Report 14280155 (Version 1)
Quarter: 2017Q4

REPORT INFORMATION
  Report Type: Spontaneous
  Country: BR (occurrence: BR)
  Receive Date: 20171212
  Receipt Date: 20171212
  Transmission Date: 20180321
  Serious: Yes (Hospitalization)
  Sender: FDA-Public Use
  Company Number: BR-ALEXION-A201713656

PATIENT
  Sex: Female

DRUGS (2)
  1. SOLIRIS [Suspect]
     Active Substance: ECULIZUMAB
     Indication: PAROXYSMAL NOCTURNAL HAEMOGLOBINURIA
     Dosage: 600 MG, UNK
     Route: 042
     Dates: start: 20130418, end: 20130509
  2. SOLIRIS [Suspect]
     Active Substance: ECULIZUMAB
     Dosage: 900 MG, UNK
     Route: 042
     Dates: start: 20130516

REACTIONS (7)
  - Hospitalisation [Unknown]
  - Blood lactate dehydrogenase increased [Unknown]
  - Back pain [Unknown]
  - Inappropriate schedule of drug administration [Unknown]
  - Arthralgia [Unknown]
  - Platelet count decreased [Unknown]
  - Haemoglobin decreased [Unknown]
